FAERS Safety Report 13014867 (Version 1)
Quarter: 2016Q4

REPORT INFORMATION
  Report Type: Spontaneous
  Country: DK (occurrence: DK)
  Receive Date: 20161209
  Receipt Date: 20161209
  Transmission Date: 20170207
  Serious: Yes (Hospitalization)
  Sender: FDA-Public Use
  Company Number: PHHY2016DK164528

PATIENT
  Age: 61 Year
  Sex: Female
  Weight: 80 kg

DRUGS (7)
  1. BIOCLAVID [Suspect]
     Active Substance: AMOXICILLIN\CLAVULANIC ACID
     Dosage: STYRKE: 500 + 125 MG
     Route: 048
     Dates: start: 20161115, end: 20161124
  2. LOSARTANKALIUM/HYDROCHLORTHIAZID ^KRKA^ [Concomitant]
     Indication: HYPERTENSION
     Dosage: STRENGTH: 100+25 MG
     Route: 065
     Dates: start: 20120208
  3. ETODOLAC  ^2CARE4^ [Concomitant]
     Indication: MYALGIA
     Route: 048
     Dates: start: 20151221
  4. BIOCLAVID [Suspect]
     Active Substance: AMOXICILLIN\CLAVULANIC ACID
     Indication: PNEUMONIA
     Dosage: STRENGTH: 500 + 125 MG
     Route: 048
     Dates: start: 201512, end: 201512
  5. BRICANYL [Concomitant]
     Active Substance: TERBUTALINE SULFATE
     Indication: BRONCHOSPASM
     Route: 065
     Dates: start: 20151221
  6. FURIX [Concomitant]
     Active Substance: FUROSEMIDE
     Indication: HYPERTENSION
     Dosage: 20 MG WHEN NEEDED. MAX 1 DAILY
     Route: 048
     Dates: start: 20120208
  7. KALEORID [Concomitant]
     Active Substance: POTASSIUM CHLORIDE
     Indication: HYPERTENSION
     Route: 048
     Dates: start: 20120810

REACTIONS (6)
  - Jaundice [Recovered/Resolved]
  - Pruritus generalised [Recovered/Resolved]
  - Hepatic enzyme increased [Recovered/Resolved]
  - Stent placement [Recovered/Resolved]
  - Pruritus [Not Recovered/Not Resolved]
  - Cholestasis [Recovered/Resolved]

NARRATIVE: CASE EVENT DATE: 201601
